FAERS Safety Report 4679032-4 (Version None)
Quarter: 2005Q2

REPORT INFORMATION
  Report Type: 
  Country: None (occurrence: None)
  Receive Date: 20050531
  Receipt Date: 20050517
  Transmission Date: 20051028
  Serious: Yes (Other)
  Sender: FDA-Public Use
  Company Number: 2005044270

PATIENT
  Age: 66 Year
  Sex: Female
  Weight: 81 kg

DRUGS (1)
  1. MINOXIDIL [Suspect]
     Indication: ALOPECIA
     Dosage: TWICE DAILY, TOPICAL
     Route: 061
     Dates: start: 20041201, end: 20050217

REACTIONS (8)
  - BONE MARROW DEPRESSION [None]
  - CEREBELLAR INFARCTION [None]
  - DIZZINESS [None]
  - HEADACHE [None]
  - HYPOXIA [None]
  - LACUNAR INFARCTION [None]
  - MOVEMENT DISORDER [None]
  - NERVOUS SYSTEM DISORDER [None]
